FAERS Safety Report 16250903 (Version 1)
Quarter: 2019Q2

REPORT INFORMATION
  Report Type: Spontaneous
  Country: LB (occurrence: LB)
  Receive Date: 20190429
  Receipt Date: 20190429
  Transmission Date: 20190711
  Serious: Yes (Death, Hospitalization, Other)
  Sender: FDA-Public Use
  Company Number: LB-BAYER-2019-080101

PATIENT
  Age: 48 Year
  Sex: Female

DRUGS (10)
  1. VENETOCLAX. [Suspect]
     Active Substance: VENETOCLAX
     Indication: ACUTE MYELOID LEUKAEMIA REFRACTORY
     Dosage: 800 MG DAILY
  2. 5-AZACYTIDINE [Suspect]
     Active Substance: AZACITIDINE
     Indication: ACUTE MYELOID LEUKAEMIA REFRACTORY
  3. VENETOCLAX. [Suspect]
     Active Substance: VENETOCLAX
     Indication: ACUTE MYELOID LEUKAEMIA REFRACTORY
     Dosage: 100 MG DAILY
  4. VENETOCLAX. [Suspect]
     Active Substance: VENETOCLAX
     Indication: ACUTE MYELOID LEUKAEMIA REFRACTORY
     Dosage: 20 MG DAILY
     Dates: start: 20171012
  5. VENETOCLAX. [Suspect]
     Active Substance: VENETOCLAX
     Indication: ACUTE MYELOID LEUKAEMIA REFRACTORY
     Dosage: 50 MG DAILY
  6. VENETOCLAX. [Suspect]
     Active Substance: VENETOCLAX
     Indication: ACUTE MYELOID LEUKAEMIA REFRACTORY
     Dosage: 100 MG DAILY
  7. VENETOCLAX. [Suspect]
     Active Substance: VENETOCLAX
     Indication: ACUTE MYELOID LEUKAEMIA REFRACTORY
     Dosage: 400 MG DAILY
  8. VORICONAZOLE. [Suspect]
     Active Substance: VORICONAZOLE
     Indication: ACUTE MYELOID LEUKAEMIA REFRACTORY
     Dosage: 200 MG, BID
  9. SORAFENIB (RAF KINASE INHIBITOR) [Suspect]
     Active Substance: SORAFENIB
     Indication: ACUTE MYELOID LEUKAEMIA REFRACTORY
     Dosage: UNK
  10. VENETOCLAX. [Suspect]
     Active Substance: VENETOCLAX
     Indication: ACUTE MYELOID LEUKAEMIA REFRACTORY
     Dosage: 200 MG DAILY

REACTIONS (14)
  - Acute sinusitis [None]
  - Polycythaemia [None]
  - Minimal residual disease [None]
  - Anaemia [None]
  - Neutropenia [Recovered/Resolved]
  - Rash [None]
  - Product use in unapproved indication [None]
  - Graft versus host disease [Recovered/Resolved]
  - Thrombocytopenia [None]
  - Cytopenia [None]
  - Acute myeloid leukaemia refractory [Fatal]
  - Metastases to nervous system [Fatal]
  - Clostridium difficile colitis [None]
  - Off label use [None]

NARRATIVE: CASE EVENT DATE: 201707
